FAERS Safety Report 9934684 (Version 1)
Quarter: 2014Q1

REPORT INFORMATION
  Report Type: Spontaneous
  Country: US (occurrence: US)
  Receive Date: 20140228
  Receipt Date: 20140228
  Transmission Date: 20141002
  Serious: No
  Sender: FDA-Public Use
  Company Number: US-ASTRAZENECA-2013SE62280

PATIENT
  Age: 72 Year
  Sex: Female
  Weight: 99.8 kg

DRUGS (2)
  1. TOPROL XL [Suspect]
     Route: 048
     Dates: start: 201308
  2. TOPROL XL [Suspect]
     Dosage: GENERIC
     Route: 048
     Dates: end: 201308

REACTIONS (1)
  - Feeling abnormal [Unknown]
